FAERS Safety Report 6588644-2 (Version None)
Quarter: 2010Q1

REPORT INFORMATION
  Report Type: 
  Country: None (occurrence: None)
  Receive Date: 20100218
  Receipt Date: 20100210
  Transmission Date: 20100710
  Serious: Yes (Other)
  Sender: FDA-Public Use
  Company Number: JP-ROCHE-685710

PATIENT
  Age: 73 Year
  Sex: Male

DRUGS (4)
  1. AVASTIN [Suspect]
     Indication: COLON CANCER
     Route: 041
  2. 5-FU [Suspect]
     Indication: COLON CANCER
     Route: 041
  3. ELPLAT [Suspect]
     Indication: COLON CANCER
     Route: 041
  4. CALCIUM LEVOFOLINATE [Suspect]
     Indication: COLON CANCER
     Route: 041

REACTIONS (1)
  - RENAL FAILURE ACUTE [None]
